FAERS Safety Report 13922466 (Version 2)
Quarter: 2018Q3

REPORT INFORMATION
  Report Type: Report from Study
  Country: CZ (occurrence: CZ)
  Receive Date: 20170830
  Receipt Date: 20180824
  Transmission Date: 20181010
  Serious: Yes (Life-Threatening, Other)
  Sender: FDA-Public Use
  Company Number: CZ-BAYER-2017-161884

PATIENT
  Age: 22 Year
  Sex: Female

DRUGS (3)
  1. MIRENA [Suspect]
     Active Substance: LEVONORGESTREL
     Indication: MENOMETRORRHAGIA
     Dosage: 20 MCG/24HR, CONT
     Route: 015
     Dates: start: 20160823, end: 20161122
  2. MIRENA [Suspect]
     Active Substance: LEVONORGESTREL
     Indication: MENORRHAGIA
  3. MIRENA [Suspect]
     Active Substance: LEVONORGESTREL
     Indication: UTERINE LEIOMYOMA

REACTIONS (4)
  - Haemorrhage [Recovered/Resolved]
  - Venous thrombosis limb [Recovered/Resolved]
  - Uterine haemorrhage [Recovered/Resolved]
  - Tendon injury [None]

NARRATIVE: CASE EVENT DATE: 2016
